FAERS Safety Report 22221121 (Version 1)
Quarter: 2023Q2

REPORT INFORMATION
  Report Type: Spontaneous
  Country: JP (occurrence: JP)
  Receive Date: 20230418
  Receipt Date: 20230418
  Transmission Date: 20230722
  Serious: Yes (Other)
  Sender: FDA-Public Use
  Company Number: JP-TAKEDA-2023TJP004600

PATIENT
  Age: 83 Year
  Sex: Male

DRUGS (1)
  1. VECTIBIX [Suspect]
     Active Substance: PANITUMUMAB
     Indication: Colon cancer
     Dosage: UNK
     Route: 042
     Dates: start: 20221220

REACTIONS (3)
  - Metastases to liver [Unknown]
  - Dermatitis acneiform [Unknown]
  - Pruritus [Unknown]

NARRATIVE: CASE EVENT DATE: 20230301
